FAERS Safety Report 8977815 (Version 1)
Quarter: 2012Q4

REPORT INFORMATION
  Report Type: 
  Country: SA (occurrence: SA)
  Receive Date: 20121220
  Receipt Date: 20121220
  Transmission Date: 20130627
  Serious: Yes (Hospitalization)
  Sender: FDA-Public Use
  Company Number: SA-ROCHE-1171945

PATIENT
  Age: 32 Year
  Sex: Female
  Weight: 44 kg

DRUGS (2)
  1. HERCEPTIN [Suspect]
     Indication: BREAST CANCER
     Route: 042
     Dates: start: 20111217
  2. TAXOTERE [Concomitant]
     Indication: BREAST CANCER
     Route: 042

REACTIONS (3)
  - Hypotension [Recovering/Resolving]
  - Tachycardia [Unknown]
  - Chest pain [Unknown]
